FAERS Safety Report 22031123 (Version 1)
Quarter: 2023Q1

REPORT INFORMATION
  Report Type: Spontaneous
  Country: DE (occurrence: DE)
  Receive Date: 20230223
  Receipt Date: 20230223
  Transmission Date: 20230418
  Serious: Yes (Other)
  Sender: FDA-Public Use
  Company Number: DE-BAYER-2023A022780

PATIENT
  Age: 16 Year
  Sex: Female

DRUGS (1)
  1. RIVAROXABAN [Suspect]
     Active Substance: RIVAROXABAN
     Indication: Deep vein thrombosis
     Route: 048

REACTIONS (4)
  - Breast haemorrhage [Unknown]
  - Eye haemorrhage [Unknown]
  - Superficial vein thrombosis [Unknown]
  - Breast necrosis [Unknown]
